FAERS Safety Report 19769348 (Version 2)
Quarter: 2021Q3

REPORT INFORMATION
  Report Type: Spontaneous
  Country: IT (occurrence: IT)
  Receive Date: 20210831
  Receipt Date: 20210907
  Transmission Date: 20211014
  Serious: Yes (Other)
  Sender: FDA-Public Use
  Company Number: IT-MYLANLABS-2021M1056053

PATIENT
  Age: 68 Year
  Sex: Female

DRUGS (6)
  1. RISEDRONATE [Suspect]
     Active Substance: RISEDRONATE SODIUM
     Indication: OSTEOPOROSIS
     Dosage: UNK, RISEDRONATE (36 MONTHS)
  2. CHLORHEXIDINE [Concomitant]
     Active Substance: CHLORHEXIDINE
     Dosage: 1% CHLORHEXIDINE GEL TARTAR ABLATION
  3. CHLORHEXIDINE [Concomitant]
     Active Substance: CHLORHEXIDINE
     Dosage: UNK, TOPICAL ANTISEPTIC THERAPY WITH 0.2% CHLORHEXIDINE  MOUTHWASH  TARTAR ABLATION
  4. ALENDRONATE [Suspect]
     Active Substance: ALENDRONATE SODIUM
     Indication: NEOPLASM MALIGNANT
     Dosage: ALENDRONATE (24 MONTHS)
  5. AMOXICILLIN. [Concomitant]
     Active Substance: AMOXICILLIN
     Dosage: 3 G/DAY SARTED THREE DAYS BEFORE THE SURGERY
  6. ALENDRONATE [Suspect]
     Active Substance: ALENDRONATE SODIUM
     Indication: OSTEOPOROSIS
     Dosage: UNK
     Route: 048

REACTIONS (3)
  - Osteonecrosis of jaw [Recovered/Resolved]
  - Product use in unapproved indication [Unknown]
  - Surgery [Recovered/Resolved]
